FAERS Safety Report 11308107 (Version 1)
Quarter: 2015Q3

REPORT INFORMATION
  Report Type: Spontaneous
  Country: FR (occurrence: FR)
  Receive Date: 20150724
  Receipt Date: 20150724
  Transmission Date: 20151125
  Serious: Yes (Hospitalization)
  Sender: FDA-Public Use
  Company Number: FR-ASTRAZENECA-2015SE71749

PATIENT
  Age: 31004 Day
  Sex: Female

DRUGS (13)
  1. LASILIX [Suspect]
     Active Substance: FUROSEMIDE
     Indication: HYPERTENSION
     Route: 048
     Dates: end: 201503
  2. HYTACAND [Suspect]
     Active Substance: CANDESARTAN CILEXETIL\HYDROCHLOROTHIAZIDE
     Indication: HYPERTENSION
     Dosage: 8 MG + 12.5 MG, 2, DF, DAILY
     Route: 048
  3. ATORVASTATINE [Concomitant]
     Active Substance: ATORVASTATIN
  4. DAFALGAN [Concomitant]
     Active Substance: ACETAMINOPHEN
  5. XYZALL [Concomitant]
     Active Substance: LEVOCETIRIZINE DIHYDROCHLORIDE
  6. HYTACAND [Suspect]
     Active Substance: CANDESARTAN CILEXETIL\HYDROCHLOROTHIAZIDE
     Indication: HYPERTENSION
     Dosage: 8 MG + 12.5 MG, 2, DF, DAILY
     Route: 048
     Dates: end: 201503
  7. DEDROGYL [Concomitant]
     Active Substance: CALCIFEDIOL
  8. LASILIX [Suspect]
     Active Substance: FUROSEMIDE
     Indication: HYPERTENSION
     Route: 048
  9. IMOVANE [Concomitant]
     Active Substance: ZOPICLONE
  10. GLYCEROL\PARAFFIN [Concomitant]
     Active Substance: GLYCERIN\PARAFFIN
  11. FLUIDABAK [Concomitant]
     Active Substance: POVIDONE
  12. KARDEGIC [Concomitant]
     Active Substance: ASPIRIN LYSINE
  13. INIPOMP [Concomitant]
     Active Substance: PANTOPRAZOLE SODIUM

REACTIONS (2)
  - Acute kidney injury [Recovered/Resolved]
  - Sepsis [Unknown]

NARRATIVE: CASE EVENT DATE: 20150320
